FAERS Safety Report 7373844-4 (Version None)
Quarter: 2011Q1

REPORT INFORMATION
  Report Type: 
  Country: None (occurrence: None)
  Receive Date: 20110325
  Receipt Date: 20110314
  Transmission Date: 20110831
  Serious: Yes (Other)
  Sender: FDA-Public Use
  Company Number: US-PFIZER INC-2011030984

PATIENT
  Sex: Male

DRUGS (1)
  1. CHANTIX [Suspect]
     Indication: SMOKING CESSATION THERAPY
     Dosage: UNK
     Dates: start: 20110203, end: 20110201

REACTIONS (5)
  - ANGER [None]
  - PARANOIA [None]
  - HEADACHE [None]
  - FEELING ABNORMAL [None]
  - NAUSEA [None]
